FAERS Safety Report 10167322 (Version 2)
Quarter: 2014Q2

REPORT INFORMATION
  Report Type: Spontaneous
  Country: CN (occurrence: CN)
  Receive Date: 20140512
  Receipt Date: 20140512
  Transmission Date: 20141212
  Serious: Yes (Other)
  Sender: FDA-Public Use
  Company Number: PHHY2013CN002762

PATIENT
  Age: 78 Year
  Sex: Female

DRUGS (2)
  1. EXFORGE [Suspect]
     Indication: HYPERTENSION
     Dosage: 1 DF, DAILY (80 MG OF VALS AND 5 MG OF AMLO)
     Route: 048
     Dates: start: 20121210, end: 20121210
  2. EXFORGE [Suspect]
     Dosage: 1.5 DF DAILY (80 MG OF VALS AND 5 MG OF AMLO)
     Route: 048

REACTIONS (3)
  - Blood pressure fluctuation [Recovering/Resolving]
  - Blood pressure inadequately controlled [Recovering/Resolving]
  - Wrong technique in drug usage process [Unknown]
